FAERS Safety Report 9100086 (Version 1)
Quarter: 2013Q1

REPORT INFORMATION
  Report Type: Spontaneous
  Country: US (occurrence: US)
  Receive Date: 20130215
  Receipt Date: 20130215
  Transmission Date: 20140127
  Serious: Yes (Hospitalization, Other)
  Sender: FDA-Public Use
  Company Number: US-TEVA-386578USA

PATIENT
  Age: 15 Year
  Sex: Male

DRUGS (4)
  1. AMPHETAMINE W/DEXTROAMPHETAMINE [Suspect]
     Dosage: 40MG IN THE EVENING
     Route: 065
  2. AMPHETAMINE W/DEXTROAMPHETAMINE [Interacting]
     Dosage: 30MG IN THE MORNING AND 10MG IN THE EVENING
     Route: 065
  3. ETHANOL [Interacting]
     Dosage: 1 DOSAGE FORMS DAILY; 6 SHOTS OF TEQUILA
  4. SERTRALINE [Concomitant]
     Route: 065

REACTIONS (3)
  - Alcohol interaction [Recovering/Resolving]
  - Acute myocardial infarction [Recovering/Resolving]
  - Inappropriate schedule of drug administration [Unknown]
